FAERS Safety Report 5087115-2 (Version None)
Quarter: 2006Q3

REPORT INFORMATION
  Report Type: 
  Country: None (occurrence: None)
  Receive Date: 20060821
  Receipt Date: 20060810
  Transmission Date: 20061208
  Serious: Yes (Other)
  Sender: FDA-Public Use
  Company Number: 2006090911

PATIENT
  Age: 69 Year
  Sex: Female

DRUGS (2)
  1. CABERGOLINE [Suspect]
     Indication: RESTLESS LEGS SYNDROME
     Dosage: 1 MG (DAILY) ORAL
     Route: 048
     Dates: start: 19990101, end: 20060720
  2. URSOFALK (URSEDEOXYCHOLIC ACID) [Concomitant]

REACTIONS (3)
  - AORTIC VALVE INCOMPETENCE [None]
  - AORTIC VALVE SCLEROSIS [None]
  - BILIARY CIRRHOSIS PRIMARY [None]
